FAERS Safety Report 23172646 (Version 1)
Quarter: 2023Q4

REPORT INFORMATION
  Report Type: Spontaneous
  Country: US (occurrence: US)
  Receive Date: 20231110
  Receipt Date: 20231110
  Transmission Date: 20240110
  Serious: No
  Sender: FDA-Public Use
  Company Number: US-PFIZER INC-PV202300184124

PATIENT
  Age: 48 Year
  Sex: Male

DRUGS (1)
  1. ZAVZPRET [Suspect]
     Active Substance: ZAVEGEPANT HYDROCHLORIDE
     Dosage: 10 MG SPRAY, 1 APPLICATION AS NEEDED NASALLY EVERY 24 HRS
     Route: 045

REACTIONS (1)
  - Illness [Unknown]
